FAERS Safety Report 26183246 (Version 1)
Quarter: 2025Q4

REPORT INFORMATION
  Report Type: Spontaneous
  Country: AU (occurrence: AU)
  Receive Date: 20251221
  Receipt Date: 20251221
  Transmission Date: 20260117
  Serious: Yes (Other)
  Sender: ACCORD
  Company Number: None

PATIENT
  Age: 41 Year
  Sex: Female

DRUGS (2)
  1. LEVOTHYROXINE [Interacting]
     Active Substance: LEVOTHYROXINE
     Indication: Product used for unknown indication
  2. AMITRIPTYLINE [Interacting]
     Active Substance: AMITRIPTYLINE
     Indication: Product used for unknown indication

REACTIONS (11)
  - Constipation [Unknown]
  - Bladder disorder [Unknown]
  - Condition aggravated [Unknown]
  - Confusional state [Unknown]
  - Hemiplegic migraine [Unknown]
  - Hypothyroidism [Unknown]
  - Malaise [Unknown]
  - Somnolence [Unknown]
  - Weight decreased [Unknown]
  - Decreased appetite [Unknown]
  - Drug ineffective [Unknown]
